FAERS Safety Report 19587759 (Version 1)
Quarter: 2021Q3

REPORT INFORMATION
  Report Type: Spontaneous
  Country: ID (occurrence: ID)
  Receive Date: 20210721
  Receipt Date: 20210721
  Transmission Date: 20211014
  Serious: Yes (Hospitalization)
  Sender: FDA-Public Use
  Company Number: ID-ALKEM LABORATORIES LIMITED-ID-ALKEM-2021-03564

PATIENT
  Age: 49 Year
  Sex: Male

DRUGS (2)
  1. PYRIDOSTIGMINE [Suspect]
     Active Substance: PYRIDOSTIGMINE
     Indication: MYASTHENIA GRAVIS
     Dosage: 180 MILLIGRAM, QD
     Route: 065
  2. AZATHIOPRINE. [Suspect]
     Active Substance: AZATHIOPRINE
     Indication: MYASTHENIA GRAVIS
     Dosage: 100 MILLIGRAM, QD
     Route: 065

REACTIONS (1)
  - COVID-19 [Recovered/Resolved]
